FAERS Safety Report 7772912-2 (Version None)
Quarter: 2011Q3

REPORT INFORMATION
  Report Type: 
  Country: None (occurrence: None)
  Receive Date: 20110922
  Receipt Date: 20100816
  Transmission Date: 20111222
  Serious: No
  Sender: FDA-Public Use
  Company Number: US-ASTRAZENECA-2009UW11466

PATIENT
  Age: 402 Month
  Sex: Female
  Weight: 85.7 kg

DRUGS (22)
  1. SEROQUEL [Suspect]
     Route: 048
     Dates: start: 20000101, end: 20011201
  2. RISPERDAL [Concomitant]
     Indication: DEPRESSION
     Dates: start: 20000101, end: 20011201
  3. ZYPREXA [Concomitant]
     Indication: HALLUCINATION, AUDITORY
     Dates: start: 20000101, end: 20000101
  4. SEROQUEL [Suspect]
     Indication: BIPOLAR DISORDER
     Dosage: 300-600 MG
     Route: 048
     Dates: start: 20000101
  5. ZYPREXA [Concomitant]
     Indication: SCHIZOPHRENIA
     Dates: start: 20000101, end: 20000101
  6. ZYPREXA [Concomitant]
     Indication: DEPRESSION
     Dates: start: 20000101, end: 20000101
  7. ZYPREXA [Concomitant]
     Dates: start: 20000101, end: 20011201
  8. ZYPREXA [Concomitant]
     Dates: start: 20000101, end: 20011201
  9. ZYPREXA [Concomitant]
     Dates: start: 20000101, end: 20011201
  10. SEROQUEL [Suspect]
     Route: 048
     Dates: start: 20000101, end: 20011201
  11. RISPERDAL [Concomitant]
     Indication: BIPOLAR DISORDER
     Dates: start: 20000101, end: 20011201
  12. ZYPREXA [Concomitant]
     Indication: BIPOLAR DISORDER
     Dates: start: 20000101, end: 20000101
  13. ZYPREXA [Concomitant]
     Dates: start: 20000101, end: 20011201
  14. SEROQUEL [Suspect]
     Indication: DEPRESSION
     Dosage: 300-600 MG
     Route: 048
     Dates: start: 20000101
  15. SEROQUEL [Suspect]
     Indication: INSOMNIA
     Dosage: 300-600 MG
     Route: 048
     Dates: start: 20000101
  16. SEROQUEL [Suspect]
     Indication: HALLUCINATION, AUDITORY
     Dosage: 300-600 MG
     Route: 048
     Dates: start: 20000101
  17. SEROQUEL [Suspect]
     Route: 048
     Dates: start: 20000101, end: 20011201
  18. SEROQUEL [Suspect]
     Route: 048
     Dates: start: 20000101, end: 20011201
  19. RISPERDAL [Concomitant]
     Indication: HALLUCINATION, AUDITORY
     Dates: start: 20000101, end: 20011201
  20. SEROQUEL [Suspect]
     Indication: SCHIZOPHRENIA
     Dosage: 300-600 MG
     Route: 048
     Dates: start: 20000101
  21. SEROQUEL [Suspect]
     Route: 048
     Dates: start: 20000101, end: 20011201
  22. RISPERDAL [Concomitant]
     Indication: SCHIZOPHRENIA
     Dates: start: 20000101, end: 20011201

REACTIONS (5)
  - BLOOD CHOLESTEROL INCREASED [None]
  - OBESITY [None]
  - TYPE 2 DIABETES MELLITUS [None]
  - HYPERLIPIDAEMIA [None]
  - HYPERGLYCAEMIA [None]
